FAERS Safety Report 6651555-8 (Version None)
Quarter: 2010Q1

REPORT INFORMATION
  Report Type: 
  Country: None (occurrence: None)
  Receive Date: 20100325
  Receipt Date: 20100318
  Transmission Date: 20100710
  Serious: Yes (Other)
  Sender: FDA-Public Use
  Company Number: B0628748A

PATIENT
  Sex: Male

DRUGS (4)
  1. SERETIDE [Suspect]
     Indication: CHRONIC OBSTRUCTIVE PULMONARY DISEASE
     Dosage: 250MCG TWICE PER DAY
     Route: 055
     Dates: start: 20090201, end: 20100108
  2. FLOMAX [Concomitant]
     Indication: BENIGN PROSTATIC HYPERPLASIA
  3. BECOTIDE [Concomitant]
     Dosage: 2PUFF TWICE PER DAY
     Route: 055
  4. VENTOLIN [Concomitant]
     Dosage: 2PUFF TWICE PER DAY
     Route: 055

REACTIONS (5)
  - DISABILITY [None]
  - DYSPNOEA [None]
  - MALAISE [None]
  - PAIN [None]
  - PNEUMONIA [None]
